FAERS Safety Report 6033908-4 (Version None)
Quarter: 2009Q1

REPORT INFORMATION
  Report Type: 
  Country: None (occurrence: None)
  Receive Date: 20090112
  Receipt Date: 20090107
  Transmission Date: 20090719
  Serious: Yes (Death, Other)
  Sender: FDA-Public Use
  Company Number: US-NOVOPROD-282940

PATIENT
  Age: 66 Year
  Sex: Female
  Weight: 96.6 kg

DRUGS (2)
  1. NOVOSEVEN [Suspect]
     Dosage: 50 MCG/KG
     Route: 042
     Dates: start: 20080817, end: 20080817
  2. PROTAMINE SULFATE [Concomitant]
     Indication: HAEMORRHAGE
     Dosage: 12.5 MG, UNK

REACTIONS (3)
  - ACUTE MYOCARDIAL INFARCTION [None]
  - PERIPHERAL EMBOLISM [None]
  - RENAL IMPAIRMENT [None]
